FAERS Safety Report 21741560 (Version 1)
Quarter: 2022Q4

REPORT INFORMATION
  Report Type: Spontaneous
  Country: BR (occurrence: BR)
  Receive Date: 20221216
  Receipt Date: 20221216
  Transmission Date: 20230113
  Serious: Yes (Other)
  Sender: FDA-Public Use
  Company Number: BR-AMGEN-BRASP2022214198

PATIENT
  Age: 43 Year
  Sex: Female

DRUGS (3)
  1. CINACALCET HYDROCHLORIDE [Suspect]
     Active Substance: CINACALCET HYDROCHLORIDE
     Indication: Hyperparathyroidism secondary
     Dosage: 30 MILLIGRAM, QD
     Route: 065
  2. CINACALCET HYDROCHLORIDE [Suspect]
     Active Substance: CINACALCET HYDROCHLORIDE
     Dosage: 90 MILLIGRAM, QD
     Route: 065
  3. CALCITRIOL [Concomitant]
     Active Substance: CALCITRIOL
     Indication: Hyperparathyroidism secondary
     Dosage: 0.5 MICROGRAM, 3 TIMES/WK
     Route: 048

REACTIONS (13)
  - Spinal compression fracture [Not Recovered/Not Resolved]
  - Hyperparathyroidism secondary [Recovering/Resolving]
  - Kyphosis [Unknown]
  - Bone deformity [Not Recovered/Not Resolved]
  - Bone loss [Unknown]
  - Drug ineffective [Unknown]
  - Body height decreased [Unknown]
  - Muscle atrophy [Unknown]
  - Brown tumour [Unknown]
  - Symphysiolysis [Unknown]
  - Stress [Unknown]
  - Mobility decreased [Not Recovered/Not Resolved]
  - Bone pain [Not Recovered/Not Resolved]
